FAERS Safety Report 15030345 (Version 1)
Quarter: 2018Q2

REPORT INFORMATION
  Report Type: Report from Study
  Country: PL (occurrence: PL)
  Receive Date: 20180619
  Receipt Date: 20180619
  Transmission Date: 20180711
  Serious: Yes (Other)
  Sender: FDA-Public Use
  Company Number: PL-CHIESI USA INC.-PL-2018CHI000158

PATIENT
  Age: 1 Day
  Sex: Male
  Weight: .94 kg

DRUGS (3)
  1. CUROSURF [Suspect]
     Active Substance: PORACTANT ALFA
     Indication: NEONATAL RESPIRATORY DISTRESS SYNDROME
     Dosage: 2.25 ML, UNK
     Route: 039
     Dates: start: 20180520
  2. CAFFEINE CITRATE. [Concomitant]
     Active Substance: CAFFEINE CITRATE
     Indication: PRODUCT USED FOR UNKNOWN INDICATION
     Dosage: UNK
     Dates: start: 20180520
  3. PARACETAMOL [Concomitant]
     Active Substance: ACETAMINOPHEN
     Indication: PREMEDICATION
     Dosage: UNK
     Dates: start: 20180520, end: 20180520

REACTIONS (2)
  - Neonatal hypoxia [Unknown]
  - Drug administration error [Unknown]

NARRATIVE: CASE EVENT DATE: 20180520
